FAERS Safety Report 17433452 (Version 2)
Quarter: 2020Q2

REPORT INFORMATION
  Report Type: Spontaneous
  Country: ES (occurrence: ES)
  Receive Date: 20200219
  Receipt Date: 20200520
  Transmission Date: 20200713
  Serious: Yes (Other)
  Sender: FDA-Public Use
  Company Number: ES-AMGEN-ESPSP2020027131

PATIENT
  Age: 70 Year
  Sex: Female
  Weight: 107 kg

DRUGS (2)
  1. ENBREL [Suspect]
     Active Substance: ETANERCEPT
     Indication: PSORIASIS
     Dosage: UNK
     Route: 065
  2. ENBREL [Suspect]
     Active Substance: ETANERCEPT
     Dosage: UNK
     Route: 065

REACTIONS (9)
  - Weight increased [Unknown]
  - Thyroid disorder [Unknown]
  - Dizziness [Unknown]
  - Acne [Unknown]
  - Arthralgia [Unknown]
  - Thyroid function test abnormal [Unknown]
  - Blood glucose increased [Unknown]
  - Tuberculosis [Unknown]
  - Fungal infection [Unknown]
